FAERS Safety Report 9115337 (Version 1)
Quarter: 2013Q1

REPORT INFORMATION
  Report Type: Spontaneous
  Country: US (occurrence: None)
  Receive Date: 20130221
  Receipt Date: 20130221
  Transmission Date: 20140127
  Serious: Yes (Disabling)
  Sender: FDA-Public Use
  Company Number: None

PATIENT
  Sex: Male
  Weight: 90.72 kg

DRUGS (9)
  1. FLUOROURACIL [Suspect]
     Indication: PHOTOSENSITIVITY REACTION
     Dosage: SMALL APPL. 3 TIMES 2 DAYS 3 TIMES 2 DAYS FOREHEAD TOPICAL
     Route: 061
     Dates: start: 20121027
  2. PETROLUM JELLY [Concomitant]
  3. CAREVE CREAM [Concomitant]
  4. CLOBETASOL [Concomitant]
  5. FEXOFENADINE [Concomitant]
  6. HYDROXYZINE [Concomitant]
  7. FLUOCINONIDE [Concomitant]
  8. PREDNISONE [Concomitant]
  9. KETOCONAZOLE SHAMPOO [Concomitant]

REACTIONS (4)
  - Application site swelling [None]
  - Hypersensitivity [None]
  - Erythema multiforme [None]
  - Skin exfoliation [None]
